FAERS Safety Report 9848223 (Version 4)
Quarter: 2016Q2

REPORT INFORMATION
  Report Type: Spontaneous
  Country: NL (occurrence: NL)
  Receive Date: 20140128
  Receipt Date: 20160610
  Transmission Date: 20160815
  Serious: Yes (Death, Other)
  Sender: FDA-Public Use
  Company Number: PHHY2013NL154149

PATIENT

DRUGS (3)
  1. THYRAX [Concomitant]
     Active Substance: LEVOTHYROXINE
     Indication: PRODUCT USED FOR UNKNOWN INDICATION
     Route: 065
  2. AFINITOR [Suspect]
     Active Substance: EVEROLIMUS
     Indication: BREAST CANCER METASTATIC
     Dosage: 1DD10 MG, UNK
     Route: 048
     Dates: start: 20131004, end: 20131217
  3. ESOMEPRAZOLE [Concomitant]
     Active Substance: ESOMEPRAZOLE
     Indication: PRODUCT USED FOR UNKNOWN INDICATION
     Route: 065

REACTIONS (12)
  - Renal impairment [Unknown]
  - Blood urine present [Recovered/Resolved]
  - Metastases to bladder [Unknown]
  - Death [Fatal]
  - Pericardial effusion [Unknown]
  - Pulmonary oedema [Unknown]
  - Breast cancer [Unknown]
  - Cardiac disorder [Unknown]
  - Oral disorder [Recovering/Resolving]
  - Stomatitis [Unknown]
  - Dyspnoea [Unknown]
  - Lung disorder [Unknown]

NARRATIVE: CASE EVENT DATE: 20131108
